FAERS Safety Report 5675073-9 (Version None)
Quarter: 2008Q1

REPORT INFORMATION
  Report Type: 
  Country: None (occurrence: None)
  Receive Date: 20080320
  Receipt Date: 20080308
  Transmission Date: 20080703
  Serious: Yes (Other)
  Sender: FDA-Public Use
  Company Number: US-PFIZER INC-2008023438

PATIENT
  Sex: Female
  Weight: 72.6 kg

DRUGS (9)
  1. CHANTIX [Suspect]
  2. LYRICA [Concomitant]
  3. CYMBALTA [Concomitant]
  4. LIPITOR [Concomitant]
  5. LISINOPRIL [Concomitant]
     Indication: HYPERTENSION
  6. KADIAN ^ZENECA^ [Concomitant]
     Indication: PAIN
  7. PERCOCET [Concomitant]
     Indication: PAIN
     Dosage: TEXT:10/325
  8. ZANAFLEX [Concomitant]
     Indication: MUSCLE RELAXANT THERAPY
  9. INSULIN [Concomitant]
     Indication: DIABETES MELLITUS

REACTIONS (2)
  - GAIT DISTURBANCE [None]
  - MYALGIA [None]
